FAERS Safety Report 5082503-2 (Version None)
Quarter: 2006Q3

REPORT INFORMATION
  Report Type: 
  Country: None (occurrence: None)
  Receive Date: 20060814
  Receipt Date: 20060801
  Transmission Date: 20061208
  Serious: Yes (Hospitalization, Other)
  Sender: FDA-Public Use
  Company Number: 2006094613

PATIENT
  Age: 57 Year
  Sex: Female

DRUGS (3)
  1. ADRIAMYCIN PFS [Suspect]
     Indication: BREAST CANCER
  2. CLOZAPINE [Suspect]
     Indication: DRUG USE FOR UNKNOWN INDICATION
     Dosage: 300 MG (300 MG, 1 IN 1 D), ORAL
     Route: 048
     Dates: start: 20051222, end: 20060612
  3. CYTOXAN [Suspect]
     Indication: BREAST CANCER

REACTIONS (3)
  - AGRANULOCYTOSIS [None]
  - LEUKOPENIA [None]
  - WHITE BLOOD CELL COUNT INCREASED [None]
